FAERS Safety Report 8351434-4 (Version None)
Quarter: 2012Q2

REPORT INFORMATION
  Report Type: 
  Country: None (occurrence: None)
  Receive Date: 20120510
  Receipt Date: 20120504
  Transmission Date: 20120825
  Serious: Yes (Other)
  Sender: FDA-Public Use
  Company Number: GB-ROCHE-1051156

PATIENT
  Sex: Female

DRUGS (13)
  1. LUCENTIS [Suspect]
     Indication: AGE-RELATED MACULAR DEGENERATION
     Route: 050
     Dates: start: 20110906
  2. LUCENTIS [Suspect]
     Route: 050
  3. ALENDRONIC ACID [Concomitant]
  4. ATENOLOL [Concomitant]
  5. FERROUS FUMARATE [Concomitant]
  6. SIMVASTATIN [Concomitant]
  7. OMEPRAZOLE [Concomitant]
  8. LUCENTIS [Suspect]
     Route: 050
     Dates: start: 20111221
  9. CARBAZOCHROME [Concomitant]
     Dates: start: 20091118
  10. LETROZOLE [Concomitant]
     Dates: start: 20101118
  11. ISOSORBIDE DINITRATE [Concomitant]
  12. NIFEDIPINE [Concomitant]
  13. CLOPIDOGREL [Concomitant]

REACTIONS (2)
  - LOWER RESPIRATORY TRACT INFECTION [None]
  - MALAISE [None]
